FAERS Safety Report 7753950-2 (Version None)
Quarter: 2011Q3

REPORT INFORMATION
  Report Type: 
  Country: None (occurrence: None)
  Receive Date: 20110915
  Receipt Date: 20110909
  Transmission Date: 20111222
  Serious: Yes (Other)
  Sender: FDA-Public Use
  Company Number: US-PFIZER INC-2011122576

PATIENT
  Sex: Female
  Weight: 58.503 kg

DRUGS (3)
  1. LYRICA [Suspect]
     Dosage: 1 PILL A DAY
  2. LORAZEPAM [Concomitant]
     Indication: SLEEP DISORDER
     Dosage: UNK
  3. LYRICA [Suspect]
     Indication: FIBROMYALGIA
     Dosage: 200 MG, 3X/DAY
     Route: 048
     Dates: start: 20010101, end: 20110604

REACTIONS (3)
  - DRUG ABUSE [None]
  - ASTHENIA [None]
  - PAIN [None]
